FAERS Safety Report 8590379-1 (Version None)
Quarter: 2012Q3

REPORT INFORMATION
  Report Type: 
  Country: None (occurrence: None)
  Receive Date: 20120813
  Receipt Date: 20120629
  Transmission Date: 20120928
  Serious: Yes (Hospitalization)
  Sender: FDA-Public Use
  Company Number: JP-MERCK-1207JPN001653

PATIENT

DRUGS (27)
  1. LEBENIN [Concomitant]
     Dosage: 3 G, UNK
     Dates: start: 20120402, end: 20120428
  2. YUNASUPIN [Concomitant]
     Dosage: 4.5 G, QD
     Dates: start: 20120326, end: 20120405
  3. GENTAMICIN SULFATE [Concomitant]
     Dosage: 80 MG, QD
     Dates: start: 20120326, end: 20120405
  4. DORNER [Concomitant]
     Dosage: UNK UNK, QD
     Dates: start: 20120406, end: 20120512
  5. LEBENIN [Concomitant]
     Dosage: QQD3 G, UNK
     Dates: start: 20120430
  6. PYDOXAL [Concomitant]
     Dosage: 30 MG, QD
     Dates: start: 20120410, end: 20120507
  7. NIZORAL [Concomitant]
     Dosage: UNK
     Dates: start: 20120410, end: 20120507
  8. METHYLPREDNISOLONE SODIUM SUCCINATE [Concomitant]
     Dosage: 40 MG, UNK
     Dates: start: 20120506, end: 20120506
  9. ZYVOX [Suspect]
     Dosage: 1200 MG, UNK
  10. TARGOCID [Concomitant]
     Dosage: 200 MG, UNK
     Dates: start: 20120429, end: 20120501
  11. DORNER [Concomitant]
     Dosage: 60 MICROGRAM, UNK
     Dates: start: 20120517
  12. MYSER (DIFLUPREDNATE) [Concomitant]
     Dosage: UNK
     Dates: start: 20120515
  13. OLOPATADINE HCL [Concomitant]
     Dosage: 10 MG, UNK
     Dates: start: 20120430, end: 20120528
  14. PREDNISOLONE [Concomitant]
     Dosage: 20 MG, UNK
     Route: 048
     Dates: start: 20120506, end: 20120528
  15. FLAGYL [Suspect]
     Dosage: 1000 MG, UNK
     Dates: start: 20120429, end: 20120512
  16. NICORANTA [Concomitant]
     Dosage: 15 MG, UNK
     Route: 048
     Dates: start: 20120128
  17. PLAVIX [Concomitant]
     Dosage: 50 MG, QD
     Dates: start: 20120125, end: 20120512
  18. TRICHLORMETHIAZIDE [Concomitant]
     Dosage: 1 MG, QD
     Route: 048
     Dates: start: 20120208
  19. VANCOMYCIN HYDROCHLORIDE [Concomitant]
     Dosage: UNK, QD
     Dates: start: 20120405, end: 20120416
  20. FLAGYL [Suspect]
     Indication: PSEUDOMEMBRANOUS COLITIS
     Dosage: 1000 MG, UNK
     Route: 048
     Dates: start: 20120403, end: 20120404
  21. ASPARA K [Concomitant]
     Dosage: 999 MG, UNK
     Dates: start: 20120501, end: 20120528
  22. MYSER (DIFLUPREDNATE) [Concomitant]
     Dosage: UNK
     Dates: start: 20120405
  23. BETAMETHASONE [Suspect]
     Dosage: UNK MG, UNK
     Dates: start: 20120410, end: 20120507
  24. PLAVIX [Concomitant]
     Dosage: 50 MG, QD
     Dates: start: 20120517
  25. VANCOMYCIN HYDROCHLORIDE [Suspect]
     Dosage: 1 G, UNK
     Dates: start: 20120416, end: 20120429
  26. ALDACTONE [Concomitant]
     Dosage: 50 MG, UNK
     Dates: start: 20120128
  27. ASPARA K [Concomitant]
     Dosage: UNK
     Dates: start: 20120402, end: 20120429

REACTIONS (2)
  - ERYTHEMA MULTIFORME [None]
  - PLATELET COUNT DECREASED [None]
